FAERS Safety Report 25492382 (Version 1)
Quarter: 2025Q2

REPORT INFORMATION
  Report Type: Spontaneous
  Country: US (occurrence: US)
  Receive Date: 20250630
  Receipt Date: 20250630
  Transmission Date: 20250716
  Serious: No
  Sender: TOLMAR
  Company Number: US-TOLMAR-24US053875

PATIENT
  Age: 33 Year
  Sex: Female

DRUGS (5)
  1. ELIGARD [Suspect]
     Active Substance: LEUPROLIDE ACETATE
     Indication: Ovarian granulosa cell tumour
     Dosage: 7.5 MILLIGRAM, Q 1 MONTH
     Route: 030
     Dates: start: 202401
  2. ELIGARD [Suspect]
     Active Substance: LEUPROLIDE ACETATE
     Indication: Ovarian granulosa cell tumour
     Route: 030
  3. ELIGARD [Suspect]
     Active Substance: LEUPROLIDE ACETATE
     Indication: Ovarian granulosa cell tumour
  4. BICALUTAMIDE [Concomitant]
     Active Substance: BICALUTAMIDE
     Indication: Ovarian granulosa cell tumour
     Route: 048
     Dates: start: 202401
  5. LETROZOLE [Concomitant]
     Active Substance: LETROZOLE
     Indication: Ovarian granulosa cell tumour
     Route: 048

REACTIONS (3)
  - Off label use [Unknown]
  - Therapeutic response unexpected [Unknown]
  - Product use issue [Unknown]

NARRATIVE: CASE EVENT DATE: 20240101
